FAERS Safety Report 15215752 (Version 1)
Quarter: 2018Q3

REPORT INFORMATION
  Report Type: Spontaneous
  Country: US (occurrence: US)
  Receive Date: 20180730
  Receipt Date: 20180730
  Transmission Date: 20181010
  Serious: No
  Sender: FDA-Public Use
  Company Number: US-ENDO PHARMACEUTICALS INC-2017-004995

PATIENT
  Sex: Female
  Weight: 79.37 kg

DRUGS (1)
  1. SUMAVEL DOSEPRO [Suspect]
     Active Substance: SUMATRIPTAN SUCCINATE
     Indication: NECK PAIN
     Dosage: UNK UNKNOWN, PRN
     Route: 065

REACTIONS (3)
  - Injection site pain [Unknown]
  - Off label use [Unknown]
  - Device malfunction [Unknown]
